FAERS Safety Report 16255782 (Version 1)
Quarter: 2019Q2

REPORT INFORMATION
  Report Type: Spontaneous
  Country: US (occurrence: US)
  Receive Date: 20190326
  Receipt Date: 20190326
  Transmission Date: 20190711
  Serious: No
  Sender: FDA-Public Use
  Company Number: None

PATIENT
  Age: 44 Year
  Sex: Female

DRUGS (1)
  1. DOCETAXEL INJ 80MG/4ML [Suspect]
     Active Substance: DOCETAXEL
     Dosage: ?          OTHER FREQUENCY:UNKNOWN;?
     Route: 042
     Dates: start: 201902

REACTIONS (2)
  - Pruritus [None]
  - Hot flush [None]

NARRATIVE: CASE EVENT DATE: 20190326
